FAERS Safety Report 18417362 (Version 2)
Quarter: 2021Q1

REPORT INFORMATION
  Report Type: Spontaneous
  Country: US (occurrence: US)
  Receive Date: 20201022
  Receipt Date: 20210123
  Transmission Date: 20210419
  Serious: No
  Sender: FDA-Public Use
  Company Number: 2020SGN02587

PATIENT
  Sex: Female

DRUGS (2)
  1. HERCEPTIN [Concomitant]
     Active Substance: TRASTUZUMAB
     Dosage: UNK, Q3WEEKS
  2. TUKYSA [Suspect]
     Active Substance: TUCATINIB
     Indication: BREAST CANCER FEMALE
     Dosage: UNK UNK, BID

REACTIONS (11)
  - Fatigue [Unknown]
  - Inappropriate schedule of product administration [Unknown]
  - Liver disorder [Unknown]
  - Memory impairment [Unknown]
  - Decreased appetite [Unknown]
  - Blood potassium abnormal [Recovered/Resolved]
  - Splenic cyst [Unknown]
  - Diarrhoea [Recovering/Resolving]
  - Haemorrhoids [Unknown]
  - Blood creatinine [Unknown]
  - Paraesthesia [Unknown]
